FAERS Safety Report 8300244-2 (Version None)
Quarter: 2012Q1

REPORT INFORMATION
  Report Type: 
  Country: None (occurrence: None)
  Receive Date: 20120323
  Receipt Date: 20100706
  Transmission Date: 20120608
  Serious: Yes (Hospitalization)
  Sender: FDA-Public Use
  Company Number: PHHY2010US32626

PATIENT
  Age: 19 Year
  Sex: Male

DRUGS (1)
  1. TOBI [Suspect]
     Indication: CYSTIC FIBROSIS
     Dosage: 300 MG BID 28 DAYS ON AND 28 DAYS OFF, INHALATION
     Route: 055
     Dates: start: 20080225

REACTIONS (1)
  - CYSTIC FIBROSIS [None]
